FAERS Safety Report 4963278-1 (Version None)
Quarter: 2006Q2

REPORT INFORMATION
  Report Type: 
  Country: None (occurrence: None)
  Receive Date: 20060405
  Receipt Date: 20051026
  Transmission Date: 20061013
  Serious: Yes (Hospitalization)
  Sender: FDA-Public Use
  Company Number: US-MERCK-0510USA09691

PATIENT
  Age: 57 Year
  Sex: Male
  Weight: 107 kg

DRUGS (2)
  1. VIOXX [Suspect]
     Indication: ARTHRITIS
     Route: 048
  2. VIOXX [Suspect]
     Indication: BACK PAIN
     Route: 048

REACTIONS (4)
  - ARTHROPATHY [None]
  - BACK DISORDER [None]
  - CARDIOVASCULAR DISORDER [None]
  - THROMBOSIS [None]
